FAERS Safety Report 15627507 (Version 1)
Quarter: 2018Q4

REPORT INFORMATION
  Report Type: Spontaneous
  Country: US (occurrence: US)
  Receive Date: 20181116
  Receipt Date: 20181116
  Transmission Date: 20190205
  Serious: Yes (Death)
  Sender: FDA-Public Use
  Company Number: None

PATIENT
  Age: 83 Year
  Sex: Female

DRUGS (1)
  1. LEVOFLOXACIN. [Suspect]
     Active Substance: LEVOFLOXACIN
     Indication: IMPAIRED HEALING
     Route: 048

REACTIONS (3)
  - Stevens-Johnson syndrome [None]
  - Decreased appetite [None]
  - Malaise [None]

NARRATIVE: CASE EVENT DATE: 20180515
